FAERS Safety Report 8594071-9 (Version None)
Quarter: 2012Q3

REPORT INFORMATION
  Report Type: 
  Country: None (occurrence: None)
  Receive Date: 20120814
  Receipt Date: 20120807
  Transmission Date: 20120928
  Serious: Yes (Hospitalization)
  Sender: FDA-Public Use
  Company Number: JP-ABBOTT-12P-087-0943380-00

PATIENT
  Age: 77 Year
  Sex: Female

DRUGS (9)
  1. AMOXICILLIN [Suspect]
     Indication: PROPHYLAXIS
  2. CLARITHROMYCIN [Suspect]
     Indication: PROPHYLAXIS
  3. AMOXICILLIN [Suspect]
     Indication: HELICOBACTER INFECTION
     Route: 048
  4. AMOXICILLIN [Suspect]
     Indication: GASTRIC ULCER
  5. CLARITHROMYCIN [Suspect]
     Indication: HELICOBACTER INFECTION
     Route: 048
  6. LANSOPRAZOLE [Suspect]
     Indication: GASTRIC ULCER
  7. LANSOPRAZOLE [Suspect]
     Indication: HELICOBACTER INFECTION
     Route: 048
  8. LANSOPRAZOLE [Suspect]
     Indication: PROPHYLAXIS
  9. CLARITHROMYCIN [Suspect]
     Indication: GASTRIC ULCER

REACTIONS (2)
  - LUNG DISORDER [None]
  - ORGANISING PNEUMONIA [None]
